FAERS Safety Report 6433276-X (Version None)
Quarter: 2009Q4

REPORT INFORMATION
  Report Type: 
  Country: None (occurrence: None)
  Receive Date: 20091109
  Receipt Date: 20091029
  Transmission Date: 20100525
  Serious: Yes (Other)
  Sender: FDA-Public Use
  Company Number: US-PFIZER INC-2009291909

PATIENT
  Sex: Male
  Weight: 68.027 kg

DRUGS (2)
  1. LYRICA [Suspect]
     Indication: NEURALGIA
     Dosage: 50 MG, 3X/DAY
     Dates: start: 20091028, end: 20091029
  2. FENTANYL [Concomitant]
     Indication: PAIN
     Dosage: UNK
     Route: 062

REACTIONS (4)
  - ACTIVITIES OF DAILY LIVING IMPAIRED [None]
  - FALL [None]
  - HYPOAESTHESIA [None]
  - MALAISE [None]
